FAERS Safety Report 8551981-6 (Version None)
Quarter: 2012Q3

REPORT INFORMATION
  Report Type: 
  Country: None (occurrence: None)
  Receive Date: 20120730
  Receipt Date: 20120717
  Transmission Date: 20120928
  Serious: Yes (Hospitalization)
  Sender: FDA-Public Use
  Company Number: CH-ABBOTT-12P-151-0919536-00

PATIENT
  Age: 12 Year
  Sex: Male

DRUGS (3)
  1. AZATHIOPRINE SODIUM [Suspect]
     Indication: CROHN'S DISEASE
  2. CORTICOSTEROIDS [Concomitant]
     Indication: PRODUCT USED FOR UNKNOWN INDICATION
     Dosage: DECREASING DOSES
  3. HUMIRA [Suspect]
     Indication: CROHN'S DISEASE

REACTIONS (4)
  - RASH [None]
  - PYREXIA [None]
  - SUPERINFECTION [None]
  - CYTOMEGALOVIRUS INFECTION [None]
